FAERS Safety Report 8447574-1 (Version None)
Quarter: 2012Q2

REPORT INFORMATION
  Report Type: 
  Country: None (occurrence: None)
  Receive Date: 20120619
  Receipt Date: 20120615
  Transmission Date: 20120825
  Serious: Yes (Life-Threatening, Hospitalization)
  Sender: FDA-Public Use
  Company Number: US-B.I. PHARMACEUTICALS,INC./RIDGEFIELD-2012-BP-13826BP

PATIENT
  Sex: Female

DRUGS (6)
  1. CYMBALTA [Concomitant]
     Indication: DEPRESSION
  2. PACERONE [Concomitant]
     Indication: CARDIAC DISORDER
  3. PLAVIX [Concomitant]
     Indication: ANTICOAGULANT THERAPY
  4. PRADAXA [Suspect]
     Indication: CEREBROVASCULAR ACCIDENT PROPHYLAXIS
     Dosage: 150 MG
     Route: 048
     Dates: start: 20120301
  5. NEURONTIN [Concomitant]
     Indication: DEPRESSION
  6. COREG [Concomitant]
     Indication: BLOOD PRESSURE

REACTIONS (4)
  - BLOOD PRESSURE DECREASED [None]
  - JOINT INJURY [None]
  - FEMUR FRACTURE [None]
  - HAEMORRHAGE [None]
